FAERS Safety Report 5615455-4 (Version None)
Quarter: 2008Q1

REPORT INFORMATION
  Report Type: 
  Country: None (occurrence: None)
  Receive Date: 20080206
  Receipt Date: 20080123
  Transmission Date: 20080703
  Serious: Yes (Hospitalization, Other)
  Sender: FDA-Public Use
  Company Number: US-AMGEN-US260588

PATIENT
  Sex: Male

DRUGS (5)
  1. ARANESP [Suspect]
     Indication: RENAL FAILURE CHRONIC
     Route: 065
     Dates: end: 20061201
  2. EPOGEN [Suspect]
     Indication: RENAL FAILURE CHRONIC
     Route: 065
  3. COREG [Concomitant]
     Route: 065
  4. ASPIRIN [Concomitant]
     Route: 065
     Dates: end: 20071201
  5. BLOOD CELLS, PACKED HUMAN [Concomitant]
     Route: 065

REACTIONS (4)
  - HAEMATEMESIS [None]
  - HAEMATOCHEZIA [None]
  - LOSS OF CONSCIOUSNESS [None]
  - RASH [None]
